FAERS Safety Report 5742367-8 (Version None)
Quarter: 2008Q2

REPORT INFORMATION
  Report Type: 
  Country: None (occurrence: None)
  Receive Date: 20080515
  Receipt Date: 20080508
  Transmission Date: 20081010
  Serious: Yes (Hospitalization, Disabling, Other)
  Sender: FDA-Public Use
  Company Number: 2007SP017609

PATIENT
  Age: 59 Year
  Sex: Male
  Weight: 65 kg

DRUGS (22)
  1. TEMODAL [Suspect]
     Indication: GLIOBLASTOMA MULTIFORME
     Dosage: 75 MG/M2; QD; PO; 150 MG/M2; QD; PO; 200 MG/M2; QD; PO
     Route: 048
     Dates: start: 20061004, end: 20061114
  2. TEMODAL [Suspect]
     Indication: GLIOBLASTOMA MULTIFORME
     Dosage: 75 MG/M2; QD; PO; 150 MG/M2; QD; PO; 200 MG/M2; QD; PO
     Route: 048
     Dates: start: 20061214, end: 20061218
  3. TEMODAL [Suspect]
     Indication: GLIOBLASTOMA MULTIFORME
     Dosage: 75 MG/M2; QD; PO; 150 MG/M2; QD; PO; 200 MG/M2; QD; PO
     Route: 048
     Dates: start: 20070209, end: 20070213
  4. TEMODAL [Suspect]
     Indication: GLIOBLASTOMA MULTIFORME
     Dosage: 75 MG/M2; QD; PO; 150 MG/M2; QD; PO; 200 MG/M2; QD; PO
     Route: 048
     Dates: start: 20070310, end: 20070314
  5. TEMODAL [Suspect]
     Indication: GLIOBLASTOMA MULTIFORME
     Dosage: 75 MG/M2; QD; PO; 150 MG/M2; QD; PO; 200 MG/M2; QD; PO
     Route: 048
     Dates: start: 20070404, end: 20070408
  6. TEMODAL [Suspect]
     Indication: GLIOBLASTOMA MULTIFORME
     Dosage: 75 MG/M2; QD; PO; 150 MG/M2; QD; PO; 200 MG/M2; QD; PO
     Route: 048
     Dates: start: 20070509, end: 20070513
  7. TEMODAL [Suspect]
     Indication: GLIOBLASTOMA MULTIFORME
     Dosage: 75 MG/M2; QD; PO; 150 MG/M2; QD; PO; 200 MG/M2; QD; PO
     Route: 048
     Dates: start: 20070606, end: 20070610
  8. TEMODAL [Suspect]
     Indication: GLIOBLASTOMA MULTIFORME
     Dosage: 75 MG/M2; QD; PO; 150 MG/M2; QD; PO; 200 MG/M2; QD; PO
     Route: 048
     Dates: start: 20070704, end: 20070708
  9. TEMODAL [Suspect]
     Indication: GLIOBLASTOMA MULTIFORME
     Dosage: 75 MG/M2; QD; PO; 150 MG/M2; QD; PO; 200 MG/M2; QD; PO
     Route: 048
     Dates: start: 20070815, end: 20070819
  10. CARBOMERCK (CARBOPLATIN) [Suspect]
     Indication: GLIOBLASTOMA MULTIFORME
     Dosage: INDRP
     Dates: start: 20070110, end: 20070110
  11. VEPESID [Suspect]
     Indication: GLIOBLASTOMA MULTIFORME
     Dosage: INDRP
     Dates: start: 20070110, end: 20070112
  12. BAKTAR [Concomitant]
  13. DEPAKENE [Concomitant]
  14. MAGNESIUM OXIDE [Concomitant]
  15. NAVOBAN [Concomitant]
  16. PRIMPERAN TAB [Concomitant]
  17. AMOBAN [Concomitant]
  18. OMEPRAZOLE [Concomitant]
  19. MYSLEE [Concomitant]
  20. DECADRON [Concomitant]
  21. RINDERON [Concomitant]
  22. KYTRIL [Concomitant]

REACTIONS (9)
  - DYSPNOEA [None]
  - HEMIPLEGIA [None]
  - MOBILITY DECREASED [None]
  - NEOPLASM PROGRESSION [None]
  - NEOPLASM RECURRENCE [None]
  - NEUTROPHIL COUNT DECREASED [None]
  - PLATELET COUNT DECREASED [None]
  - VENOUS THROMBOSIS [None]
  - WHITE BLOOD CELL COUNT DECREASED [None]
